FAERS Safety Report 10039671 (Version 1)
Quarter: 2014Q1

REPORT INFORMATION
  Report Type: Spontaneous
  Country: US (occurrence: US)
  Receive Date: 20140326
  Receipt Date: 20140326
  Transmission Date: 20141002
  Serious: Yes (Hospitalization)
  Sender: FDA-Public Use
  Company Number: US-MYLANLABS-2014S1006154

PATIENT
  Age: 78 Year
  Sex: Female

DRUGS (9)
  1. GABAPENTIN [Suspect]
     Indication: NEURALGIA
     Dosage: 900MG DAILY
     Route: 065
  2. LISINOPRIL [Concomitant]
     Dosage: 5MG DAILY
     Route: 065
  3. FUROSEMIDE [Concomitant]
     Dosage: 60MG DAILY
     Route: 065
  4. SIMVASTATIN [Concomitant]
     Route: 065
  5. METFORMIN [Concomitant]
     Route: 065
  6. CITALOPRAM [Concomitant]
     Route: 065
  7. FLUTICASONE PROPIONATE [Concomitant]
     Route: 065
  8. SALBUTAMOL [Concomitant]
     Route: 065
  9. METOLAZONE [Concomitant]
     Route: 065

REACTIONS (2)
  - Myoclonus [Recovered/Resolved]
  - Toxicity to various agents [Recovered/Resolved]
